FAERS Safety Report 4987636-4 (Version None)
Quarter: 2006Q2

REPORT INFORMATION
  Report Type: 
  Country: None (occurrence: None)
  Receive Date: 20060424
  Receipt Date: 20060403
  Transmission Date: 20061013
  Serious: Yes (Other)
  Sender: FDA-Public Use
  Company Number: US200604000970

PATIENT
  Age: 33 Year
  Sex: Female

DRUGS (9)
  1. CYMBALTA [Suspect]
     Dosage: 60 MG
  2. CARISOPRODOL [Concomitant]
  3. ALBUTEROL [Concomitant]
  4. PHENERGAN (PROMETHAZINE HYDROCHLORIDE) [Concomitant]
  5. HYDROCODONE [Concomitant]
  6. INDERAL LA [Concomitant]
  7. LOMOTIL [Concomitant]
  8. NABUMETONE [Concomitant]
  9. VALIUM [Concomitant]

REACTIONS (1)
  - CONVULSION [None]
